FAERS Safety Report 7209168-5 (Version None)
Quarter: 2011Q1

REPORT INFORMATION
  Report Type: 
  Country: None (occurrence: None)
  Receive Date: 20110103
  Receipt Date: 20110103
  Transmission Date: 20110831
  Serious: Yes (Disabling)
  Sender: FDA-Public Use
  Company Number: None

PATIENT
  Sex: Female
  Weight: 72.6 kg

DRUGS (1)
  1. TAXUS LIBERTE [Suspect]

REACTIONS (3)
  - DYSPNOEA [None]
  - TACHYCARDIA [None]
  - HYPOTENSION [None]
